FAERS Safety Report 25455321 (Version 2)
Quarter: 2025Q2

REPORT INFORMATION
  Report Type: Report from Study
  Country: PK (occurrence: PK)
  Receive Date: 20250619
  Receipt Date: 20250623
  Transmission Date: 20250717
  Serious: Yes (Death, Hospitalization)
  Sender: ROCHE
  Company Number: PK-ROCHE-10000316025

PATIENT
  Age: 62 Year
  Sex: Male

DRUGS (2)
  1. AVASTIN [Suspect]
     Active Substance: BEVACIZUMAB
     Indication: Hepatocellular carcinoma
     Route: 042
     Dates: start: 20241116, end: 20250507
  2. TECENTRIQ [Suspect]
     Active Substance: ATEZOLIZUMAB
     Indication: Hepatocellular carcinoma
     Route: 042
     Dates: start: 20241116, end: 20250507

REACTIONS (1)
  - Hepatomegaly [Fatal]
